FAERS Safety Report 14300580 (Version 7)
Quarter: 2018Q2

REPORT INFORMATION
  Report Type: Report from Study
  Country: JP (occurrence: JP)
  Receive Date: 20171219
  Receipt Date: 20180514
  Transmission Date: 20180711
  Serious: Yes (Life-Threatening, Hospitalization)
  Sender: FDA-Public Use
  Company Number: JP-ROCHE-2035242

PATIENT
  Age: 82 Year
  Sex: Female
  Weight: 49.1 kg

DRUGS (50)
  1. NAB-PACLITAXEL [Suspect]
     Active Substance: PACLITAXEL
     Indication: BREAST CANCER METASTATIC
     Dosage: ON DAYS 1, 8 AND 15 OF EACH 28-DAY CYCLE?MOST RECENT DOSE OF PACLITAXEL ALBUMIN PRIOR TO SAE ONSET
     Route: 042
     Dates: start: 20170502
  2. FLUITRAN [Suspect]
     Active Substance: TRICHLORMETHIAZIDE
     Route: 065
     Dates: start: 20171229
  3. URSODEOXYCHOLIC ACID [Concomitant]
     Active Substance: URSODIOL
     Route: 065
     Dates: start: 20180119
  4. KETOPROFEN. [Concomitant]
     Active Substance: KETOPROFEN
     Route: 065
     Dates: start: 20170629
  5. GENTACIN [Concomitant]
     Active Substance: GENTAMICIN SULFATE
     Indication: PARONYCHIA
     Route: 065
     Dates: start: 20170817, end: 20171117
  6. GRACEVIT [Concomitant]
     Active Substance: SITAFLOXACIN
     Indication: BRONCHITIS CHRONIC
  7. PARIET [Concomitant]
     Active Substance: RABEPRAZOLE SODIUM
     Route: 065
     Dates: start: 20180119
  8. WARFARIN [Concomitant]
     Active Substance: WARFARIN
     Route: 065
     Dates: start: 20171212, end: 20180109
  9. PL [Concomitant]
     Active Substance: ACETAMINOPHEN\CAFFEINE\PROMETHAZINE\SALICYLAMIDE
     Indication: BRONCHITIS CHRONIC
  10. ZITHROMAC [Concomitant]
     Active Substance: AZITHROMYCIN DIHYDRATE
     Indication: BRONCHITIS CHRONIC
     Dosage: SUSTAINED RELEASE
     Route: 065
  11. RECALBON (JAPAN) [Concomitant]
     Active Substance: MINODRONIC ACID
     Indication: OSTEOPOROSIS
  12. SOLACET F [Concomitant]
     Route: 065
     Dates: start: 20171211, end: 20171211
  13. RINDERON VG [Concomitant]
     Active Substance: BETAMETHASONE VALERATE\GENTAMICIN SULFATE
     Route: 065
     Dates: start: 20171228
  14. PENTAGIN [Concomitant]
     Active Substance: PENTAZOCINE HYDROCHLORIDE
     Indication: BILE DUCT STONE
     Route: 065
     Dates: start: 20180118, end: 20180118
  15. MIDAZOLAM [Concomitant]
     Active Substance: MIDAZOLAM HYDROCHLORIDE
     Indication: BILE DUCT STONE
     Route: 065
     Dates: start: 20180118, end: 20180118
  16. ATEZOLIZUMAB. [Suspect]
     Active Substance: ATEZOLIZUMAB
     Indication: BREAST CANCER METASTATIC
     Dosage: ON DAYS 1 AND 15 OF EACH 28-DAY CYCLE?MOST RECENT DOSE OF ATEZOLIZUMAB PRIOR TO SAE ONSET ON 14/NOV/
     Route: 042
     Dates: start: 20170502
  17. WARFARIN [Concomitant]
     Active Substance: WARFARIN
     Route: 065
     Dates: start: 20180112
  18. BEZATOL SR [Concomitant]
     Active Substance: BEZAFIBRATE
     Indication: HYPERLIPIDAEMIA
     Route: 065
     Dates: end: 20180118
  19. BLOPRESS [Concomitant]
     Active Substance: CANDESARTAN CILEXETIL
     Indication: HYPERTENSION
     Route: 065
     Dates: end: 20180118
  20. BLOPRESS [Concomitant]
     Active Substance: CANDESARTAN CILEXETIL
     Route: 065
     Dates: start: 20180119
  21. MOHRUS TAPE [Concomitant]
     Active Substance: KETOPROFEN
     Indication: OSTEOARTHRITIS
     Route: 065
  22. MOHRUS TAPE L [Concomitant]
     Active Substance: KETOPROFEN
     Indication: SPINAL OSTEOARTHRITIS
     Route: 065
  23. URSODEOXYCHOLIC ACID [Concomitant]
     Active Substance: URSODIOL
     Indication: CHOLELITHIASIS
     Route: 065
     Dates: end: 20180111
  24. PARIET [Concomitant]
     Active Substance: RABEPRAZOLE SODIUM
     Indication: CHRONIC GASTRITIS
     Route: 065
     Dates: end: 20180118
  25. SELBEX [Concomitant]
     Active Substance: TEPRENONE
     Indication: CHRONIC GASTRITIS
     Route: 065
     Dates: end: 20180118
  26. GENTACIN [Concomitant]
     Active Substance: GENTAMICIN SULFATE
     Route: 065
     Dates: start: 20171228
  27. CEFAZOLIN SODIUM. [Concomitant]
     Active Substance: CEFAZOLIN SODIUM
     Indication: PROPHYLAXIS
     Route: 065
     Dates: start: 20171211
  28. BESOFTEN [Concomitant]
     Active Substance: PENTOSAN POLYSULFATE SODIUM
     Route: 065
     Dates: start: 20171208, end: 20171228
  29. URSO [Concomitant]
     Active Substance: URSODIOL
     Indication: CHOLELITHIASIS
     Route: 065
     Dates: start: 20180111, end: 20180118
  30. ACELIO [Concomitant]
     Active Substance: ACETAMINOPHEN
     Indication: BILE DUCT STONE
     Route: 065
     Dates: start: 20180119, end: 20180120
  31. BESOFTEN [Concomitant]
     Active Substance: PENTOSAN POLYSULFATE SODIUM
     Indication: PARONYCHIA
     Route: 065
     Dates: start: 20171107, end: 20171228
  32. PICILLIBACTA [Concomitant]
     Active Substance: AMPICILLIN SODIUM\SULBACTAM SODIUM
     Indication: PROPHYLAXIS
     Route: 065
     Dates: start: 20180118
  33. LOXOPROFEN NA [Concomitant]
     Active Substance: LOXOPROFEN SODIUM
     Indication: BILE DUCT STONE
     Route: 065
     Dates: start: 20180122
  34. SELBEX [Concomitant]
     Active Substance: TEPRENONE
     Route: 065
     Dates: start: 20180119
  35. ISODINE [Concomitant]
     Active Substance: POVIDONE-IODINE
     Indication: STOMATITIS
     Route: 065
  36. NIFLAN [Concomitant]
     Active Substance: PRANOPROFEN
     Indication: CONJUNCTIVITIS
     Route: 065
  37. AZUNOL [Concomitant]
     Active Substance: SODIUM GUALENATE
     Indication: SKIN EXFOLIATION
     Route: 065
     Dates: start: 20180118
  38. WARFARIN [Concomitant]
     Active Substance: WARFARIN
     Indication: PULMONARY EMBOLISM
     Route: 065
     Dates: end: 20171206
  39. ULTIBRO [Concomitant]
     Active Substance: GLYCOPYRRONIUM\INDACATEROL
     Indication: ASTHMA
     Route: 065
  40. KETOPROFEN. [Concomitant]
     Active Substance: KETOPROFEN
     Indication: OSTEOARTHRITIS
     Route: 065
     Dates: start: 20170629
  41. THYRADIN-S [Concomitant]
     Active Substance: LEVOTHYROXINE
     Indication: HYPOTHYROIDISM
     Route: 065
     Dates: start: 20171107
  42. FLUITRAN [Suspect]
     Active Substance: TRICHLORMETHIAZIDE
     Indication: HYPERTENSION
     Route: 065
     Dates: end: 20171202
  43. BEZATOL SR [Concomitant]
     Active Substance: BEZAFIBRATE
     Indication: DEEP VEIN THROMBOSIS
     Route: 065
     Dates: start: 20180119
  44. AMLODIPINE [Concomitant]
     Active Substance: AMLODIPINE BESYLATE
     Indication: HYPERTENSION
     Route: 065
  45. HEPARIN SODIUM. [Concomitant]
     Active Substance: HEPARIN SODIUM
     Indication: PULMONARY EMBOLISM
     Route: 065
     Dates: start: 20171207, end: 20171214
  46. HEPARINOID CREAM [Concomitant]
     Indication: PARONYCHIA
     Route: 065
     Dates: start: 20171211
  47. RINDERON VG [Concomitant]
     Active Substance: BETAMETHASONE VALERATE\GENTAMICIN SULFATE
     Indication: PARONYCHIA
     Route: 065
     Dates: start: 20171212
  48. WHITE PETROLATUM [Concomitant]
     Active Substance: PETROLATUM
     Indication: DRY SKIN
     Route: 065
     Dates: start: 20171216
  49. MIRACID [Concomitant]
     Indication: BILE DUCT STONE
     Route: 065
     Dates: start: 20180118, end: 20180121
  50. CEFMETAZOLE [Concomitant]
     Active Substance: CEFMETAZOLE
     Indication: PROPHYLAXIS
     Route: 065
     Dates: start: 20180118, end: 20180118

REACTIONS (3)
  - Dehydration [Recovered/Resolved]
  - Inappropriate antidiuretic hormone secretion [Recovered/Resolved]
  - Spinal compression fracture [Not Recovered/Not Resolved]

NARRATIVE: CASE EVENT DATE: 20171128
